FAERS Safety Report 16847286 (Version 2)
Quarter: 2019Q3

REPORT INFORMATION
  Report Type: Spontaneous
  Country: FR (occurrence: FR)
  Receive Date: 20190924
  Receipt Date: 20190926
  Transmission Date: 20191005
  Serious: Yes (Other)
  Sender: FDA-Public Use
  Company Number: FR-009507513-1909FRA007184

PATIENT
  Age: 31 Year
  Sex: Female
  Weight: 71 kg

DRUGS (3)
  1. ATARAX [Concomitant]
     Active Substance: HYDROXYZINE HYDROCHLORIDE
     Indication: ANXIETY
     Dosage: 1 TABLET PER DAY PER ORAL ROUTE IF NEEDED
     Route: 048
  2. SPASFON [Concomitant]
     Indication: PAIN
     Dosage: 2 TABLETS X 3 TIMES PER DAY
     Route: 048
     Dates: start: 20190112, end: 20190126
  3. CELESTENE CHRONODOSE [Suspect]
     Active Substance: BETAMETHASONE
     Indication: PROPHYLAXIS
     Dosage: UNK
     Route: 030
     Dates: start: 20190112, end: 20190113

REACTIONS (6)
  - Complication of delivery [Recovered/Resolved]
  - Exposure during pregnancy [Recovered/Resolved]
  - Pre-eclampsia [Unknown]
  - Caesarean section [Recovered/Resolved]
  - Hypertension [Unknown]
  - Premature delivery [Recovered/Resolved]

NARRATIVE: CASE EVENT DATE: 2019
